FAERS Safety Report 7133264-4 (Version None)
Quarter: 2010Q4

REPORT INFORMATION
  Report Type: 
  Country: None (occurrence: None)
  Receive Date: 20101117
  Receipt Date: 20101102
  Transmission Date: 20110411
  Serious: Yes (Death, Hospitalization)
  Sender: FDA-Public Use
  Company Number: AUR-APL-2010-02726

PATIENT
  Age: 58 Year

DRUGS (5)
  1. FLUOXETINE [Suspect]
     Indication: DEPRESSION
  2. ESCITALOPRAM [Suspect]
     Indication: DEPRESSION
  3. TRAZODONE HCL [Suspect]
     Indication: DEPRESSION
  4. BUSPIRONE HCL [Concomitant]
  5. TEMAZEPAM [Concomitant]

REACTIONS (9)
  - APNOEA [None]
  - CARDIAC ARREST [None]
  - COMA [None]
  - FALL [None]
  - MALAISE [None]
  - NEUROLOGICAL DECOMPENSATION [None]
  - SINUS TACHYCARDIA [None]
  - TORSADE DE POINTES [None]
  - VENTRICULAR FIBRILLATION [None]
